FAERS Safety Report 15385380 (Version 3)
Quarter: 2019Q3

REPORT INFORMATION
  Report Type: Spontaneous
  Country: US (occurrence: US)
  Receive Date: 20180914
  Receipt Date: 20190731
  Transmission Date: 20191004
  Serious: Yes (Hospitalization, Congenital Anomaly, Other)
  Sender: FDA-Public Use
  Company Number: US-APOTEX-2018AP020663

PATIENT
  Sex: Female
  Weight: .74 kg

DRUGS (7)
  1. PAXIL [Suspect]
     Active Substance: PAROXETINE HYDROCHLORIDE
     Dosage: 20 MG, QD
     Route: 064
  2. PAROXETINE. [Suspect]
     Active Substance: PAROXETINE
     Dosage: 20 MG, UNK
     Route: 064
     Dates: start: 20080718
  3. PAXIL [Suspect]
     Active Substance: PAROXETINE HYDROCHLORIDE
     Indication: ANXIETY
     Dosage: 40 MG, QD ONE AND A HALF
     Route: 064
     Dates: start: 20080612, end: 20090409
  4. PAROXETINE. [Suspect]
     Active Substance: PAROXETINE
     Indication: ANXIETY
     Dosage: UNK
     Route: 064
  5. PAXIL [Suspect]
     Active Substance: PAROXETINE HYDROCHLORIDE
     Dosage: 30 MG, UNK
     Route: 064
     Dates: start: 20080805
  6. PAXIL [Suspect]
     Active Substance: PAROXETINE HYDROCHLORIDE
     Indication: DEPRESSION
     Dosage: 60 MG, QD
     Route: 064
     Dates: start: 20080605
  7. PAROXETINE. [Suspect]
     Active Substance: PAROXETINE
     Indication: DEPRESSION
     Dosage: 40 MG, UNK
     Route: 064
     Dates: start: 20080125, end: 20080529

REACTIONS (27)
  - Atelectasis neonatal [Unknown]
  - Deafness [Unknown]
  - Cerebral cyst [Unknown]
  - Limb discomfort [Unknown]
  - Cerebrospinal fluid leakage [Unknown]
  - Atelectasis [Unknown]
  - Muscular weakness [Unknown]
  - Patent ductus arteriosus [Unknown]
  - Intraventricular haemorrhage neonatal [Unknown]
  - Spinal osteoarthritis [Unknown]
  - Neural tube defect [Unknown]
  - Atrial septal defect [Unknown]
  - Foetal exposure during pregnancy [Unknown]
  - Premature baby [Unknown]
  - Osteopenia [Unknown]
  - Gait disturbance [Unknown]
  - Spina bifida [Unknown]
  - Meningomyelocele [Unknown]
  - Bronchopulmonary dysplasia [Unknown]
  - Meningitis [Unknown]
  - Enlarged foetal cisterna magna [Unknown]
  - Respiratory distress [Unknown]
  - Neurogenic bladder [Unknown]
  - Haemorrhage intracranial [Unknown]
  - Cerebral ventricle dilatation [Unknown]
  - Arnold-Chiari malformation [Unknown]
  - Hydrocephalus [Unknown]

NARRATIVE: CASE EVENT DATE: 20090725
